FAERS Safety Report 17681966 (Version 1)
Quarter: 2020Q2

REPORT INFORMATION
  Report Type: Spontaneous
  Country: US (occurrence: US)
  Receive Date: 20200418
  Receipt Date: 20200418
  Transmission Date: 20200714
  Serious: No
  Sender: FDA-Public Use
  Company Number: US-DRREDDYS-USA/USA/20/0121975

PATIENT
  Age: 35 Year
  Sex: Male
  Weight: 103.5 kg

DRUGS (1)
  1. NICOTINE. [Suspect]
     Active Substance: NICOTINE
     Indication: TOBACCO USER
     Dosage: APPLIED PATCH TO THE TOP PART OF THE BACK OR SHOULDER BLADE
     Route: 062
     Dates: start: 2020, end: 2020

REACTIONS (5)
  - Product packaging issue [Unknown]
  - Product adhesion issue [Unknown]
  - Underdose [Unknown]
  - Product expiration date issue [Unknown]
  - Expired product administered [Unknown]
